FAERS Safety Report 24407968 (Version 5)
Quarter: 2025Q1

REPORT INFORMATION
  Report Type: Spontaneous
  Country: JP (occurrence: JP)
  Receive Date: 20241007
  Receipt Date: 20250130
  Transmission Date: 20250409
  Serious: Yes (Other)
  Sender: RADIUS PHARM
  Company Number: JP-RADIUS HEALTH INC.-2024JP007515

PATIENT
  Age: 59 Year
  Sex: Female

DRUGS (3)
  1. ABALOPARATIDE [Suspect]
     Active Substance: ABALOPARATIDE
     Indication: Osteoporosis
     Route: 058
     Dates: start: 20240705
  2. BUDEFORU [Concomitant]
     Indication: Product used for unknown indication
     Dates: start: 202406
  3. ZOLPIDEM TARTRATE [Concomitant]
     Active Substance: ZOLPIDEM TARTRATE
     Indication: Product used for unknown indication
     Route: 048
     Dates: start: 2014

REACTIONS (15)
  - Paraesthesia [Not Recovered/Not Resolved]
  - Vascular pain [Not Recovered/Not Resolved]
  - Muscle spasms [Not Recovered/Not Resolved]
  - Muscle spasms [Not Recovered/Not Resolved]
  - Vascular pain [Not Recovered/Not Resolved]
  - Angiopathy [Not Recovered/Not Resolved]
  - Internal haemorrhage [Recovering/Resolving]
  - Pain in extremity [Not Recovered/Not Resolved]
  - Metatarsalgia [Not Recovered/Not Resolved]
  - Paraesthesia [Not Recovered/Not Resolved]
  - Sciatica [Not Recovered/Not Resolved]
  - Vascular pain [Not Recovered/Not Resolved]
  - Angiopathy [Not Recovered/Not Resolved]
  - Back pain [Not Recovered/Not Resolved]
  - Pain [Not Recovered/Not Resolved]

NARRATIVE: CASE EVENT DATE: 20240701
